FAERS Safety Report 9311257 (Version 1)
Quarter: 2013Q2

REPORT INFORMATION
  Report Type: Spontaneous
  Country: BR (occurrence: BR)
  Receive Date: 20130528
  Receipt Date: 20130528
  Transmission Date: 20140414
  Serious: Yes (Other)
  Sender: FDA-Public Use
  Company Number: BR-PFIZER INC-2013159591

PATIENT
  Age: 32 Year
  Sex: Female

DRUGS (2)
  1. LYRICA [Suspect]
     Indication: PAIN
     Dosage: ONCE CAPSULE (75MG) EVERY 8 HOURS
     Route: 048
     Dates: start: 201301, end: 2013
  2. LYRICA [Suspect]
     Indication: HYPOAESTHESIA

REACTIONS (1)
  - Intervertebral disc protrusion [Unknown]
